FAERS Safety Report 11886304 (Version 1)
Quarter: 2016Q1

REPORT INFORMATION
  Report Type: Spontaneous
  Country: CN (occurrence: CN)
  Receive Date: 20160104
  Receipt Date: 20160104
  Transmission Date: 20160526
  Serious: Yes (Hospitalization, Other)
  Sender: FDA-Public Use
  Company Number: CN-BRISTOL-MYERS SQUIBB COMPANY-BMS-2015-092657

PATIENT
  Age: 57 Year
  Sex: Male

DRUGS (2)
  1. BARACLUDE [Suspect]
     Active Substance: ENTECAVIR
     Dosage: 1 MG, UNK
     Route: 048
     Dates: start: 2014, end: 2015
  2. BARACLUDE [Suspect]
     Active Substance: ENTECAVIR
     Indication: HEPATITIS B
     Dosage: 0.5 MG, QD
     Route: 048
     Dates: start: 2014, end: 2015

REACTIONS (3)
  - Drug dose omission [Unknown]
  - Acute hepatic failure [Unknown]
  - Viral load increased [Unknown]

NARRATIVE: CASE EVENT DATE: 2015
